FAERS Safety Report 13505234 (Version 1)
Quarter: 2017Q2

REPORT INFORMATION
  Report Type: Spontaneous
  Country: US (occurrence: US)
  Receive Date: 20170502
  Receipt Date: 20170502
  Transmission Date: 20170830
  Serious: No
  Sender: FDA-Public Use
  Company Number: US-BAYER-2017-079143

PATIENT
  Age: 29 Year
  Sex: Female
  Weight: 67 kg

DRUGS (3)
  1. ALEVE [Suspect]
     Active Substance: NAPROXEN SODIUM
     Indication: VIRAL UPPER RESPIRATORY TRACT INFECTION
     Dosage: UNK
     Dates: start: 20170424, end: 20170425
  2. ALEVE [Suspect]
     Active Substance: NAPROXEN SODIUM
     Indication: PAIN
     Dosage: 4 EVERY 6 HOURS
     Route: 048
     Dates: start: 20170422, end: 201704
  3. ALEVE [Suspect]
     Active Substance: NAPROXEN SODIUM
     Indication: PYREXIA

REACTIONS (5)
  - Bone pain [Unknown]
  - Headache [Recovering/Resolving]
  - Product use issue [Not Recovered/Not Resolved]
  - Abdominal pain upper [Recovering/Resolving]
  - Product use issue [Recovered/Resolved]

NARRATIVE: CASE EVENT DATE: 20170422
